FAERS Safety Report 10711759 (Version 2)
Quarter: 2015Q1

REPORT INFORMATION
  Report Type: Spontaneous
  Country: US (occurrence: US)
  Receive Date: 20150114
  Receipt Date: 20150224
  Transmission Date: 20150721
  Serious: Yes (Other)
  Sender: FDA-Public Use
  Company Number: US-TEVA-533662USA

PATIENT
  Age: 48 Year
  Sex: Female

DRUGS (4)
  1. QNASL [Suspect]
     Active Substance: BECLOMETHASONE DIPROPIONATE
     Route: 045
     Dates: start: 2013, end: 2013
  2. PATANASE [Concomitant]
     Active Substance: OLOPATADINE HYDROCHLORIDE
  3. CLARINEX [Concomitant]
     Active Substance: DESLORATADINE
  4. QNASL [Suspect]
     Active Substance: BECLOMETHASONE DIPROPIONATE
     Route: 045
     Dates: start: 201411, end: 201412

REACTIONS (3)
  - Nasal septum disorder [Recovering/Resolving]
  - Nasal septum ulceration [Recovering/Resolving]
  - Rhinalgia [Recovered/Resolved]

NARRATIVE: CASE EVENT DATE: 2013
